FAERS Safety Report 7000950-6 (Version None)
Quarter: 2010Q3

REPORT INFORMATION
  Report Type: 
  Country: None (occurrence: None)
  Receive Date: 20100920
  Receipt Date: 20100910
  Transmission Date: 20110219
  Serious: Yes (Hospitalization)
  Sender: FDA-Public Use
  Company Number: BR-ASTRAZENECA-2010SE42909

PATIENT
  Age: 64 Year
  Sex: Female
  Weight: 61 kg

DRUGS (6)
  1. CRESTOR [Suspect]
     Indication: HYPERCHOLESTEROLAEMIA
     Route: 048
     Dates: start: 20000101
  2. CRESTOR [Suspect]
     Route: 048
     Dates: start: 20100801
  3. EZETROL [Concomitant]
     Indication: HYPERCHOLESTEROLAEMIA
     Route: 048
     Dates: start: 20100801
  4. SOMALGIN CARDIO [Concomitant]
     Route: 048
     Dates: start: 20100801
  5. PLAGREL [Concomitant]
     Route: 048
     Dates: start: 20100801
  6. SUSTRATE [Concomitant]
     Route: 048
     Dates: start: 20100801

REACTIONS (3)
  - CORONARY ARTERY ANEURYSM [None]
  - CORONARY ARTERY DISEASE [None]
  - CORONARY ARTERY OCCLUSION [None]
